FAERS Safety Report 7402864-6 (Version None)
Quarter: 2011Q2

REPORT INFORMATION
  Report Type: 
  Country: None (occurrence: None)
  Receive Date: 20110408
  Receipt Date: 20110330
  Transmission Date: 20111010
  Serious: Yes (Hospitalization)
  Sender: FDA-Public Use
  Company Number: US-AMGEN-USASP2011017150

PATIENT
  Age: 53 Year
  Sex: Female

DRUGS (1)
  1. ENBREL [Suspect]
     Indication: PSORIATIC ARTHROPATHY
     Dates: start: 20041012

REACTIONS (8)
  - CEREBROVASCULAR ACCIDENT [None]
  - TRANSIENT ISCHAEMIC ATTACK [None]
  - ACTIVITIES OF DAILY LIVING IMPAIRED [None]
  - DIABETES MELLITUS [None]
  - BLOOD COUNT ABNORMAL [None]
  - HYPERTENSION [None]
  - MEMORY IMPAIRMENT [None]
  - INFECTION [None]
